FAERS Safety Report 16854542 (Version 4)
Quarter: 2022Q1

REPORT INFORMATION
  Report Type: Spontaneous
  Country: US (occurrence: US)
  Receive Date: 20190926
  Receipt Date: 20220106
  Transmission Date: 20220423
  Serious: Yes (Death, Hospitalization, Other)
  Sender: FDA-Public Use
  Company Number: US-GILEAD-2019-0429206

PATIENT
  Age: 68 Year
  Sex: Male
  Weight: 75.296 kg

DRUGS (27)
  1. ATRIPLA [Suspect]
     Active Substance: EFAVIRENZ\EMTRICITABINE\TENOFOVIR DISOPROXIL FUMARATE
     Indication: HIV infection
     Dosage: UNK
     Route: 048
     Dates: start: 20080911, end: 20130228
  2. ATRIPLA [Suspect]
     Active Substance: EFAVIRENZ\EMTRICITABINE\TENOFOVIR DISOPROXIL FUMARATE
     Dosage: UNK
     Route: 065
     Dates: start: 20080911, end: 200912
  3. TRUVADA [Suspect]
     Active Substance: EMTRICITABINE\TENOFOVIR DISOPROXIL FUMARATE
     Indication: HIV infection
     Dosage: UNK
     Route: 048
     Dates: start: 2004, end: 2017
  4. TRUVADA [Suspect]
     Active Substance: EMTRICITABINE\TENOFOVIR DISOPROXIL FUMARATE
     Dosage: UNK
     Route: 065
     Dates: start: 201001, end: 201112
  5. VIREAD [Suspect]
     Active Substance: TENOFOVIR DISOPROXIL FUMARATE
     Indication: HIV infection
     Route: 048
  6. PROMETHAZINE [Concomitant]
     Active Substance: PROMETHAZINE HYDROCHLORIDE
  7. BUPROPION [Concomitant]
     Active Substance: BUPROPION
  8. HYDROCHLOROTHIAZIDE\LISINOPRIL [Concomitant]
     Active Substance: HYDROCHLOROTHIAZIDE\LISINOPRIL
  9. KETOPROFEN [Concomitant]
     Active Substance: KETOPROFEN
  10. LOPERAMIDE [Concomitant]
     Active Substance: LOPERAMIDE
  11. HYDROCHLOROTHIAZIDE [Concomitant]
     Active Substance: HYDROCHLOROTHIAZIDE
  12. DIOVAN [Concomitant]
     Active Substance: VALSARTAN
  13. AMOXICILLIN [Concomitant]
     Active Substance: AMOXICILLIN
  14. APAP [Concomitant]
     Active Substance: ACETAMINOPHEN
  15. BISACODYL [Concomitant]
     Active Substance: BISACODYL
  16. GAVILYTE - C [Concomitant]
     Active Substance: POLYETHYLENE GLYCOL 3350\POTASSIUM CHLORIDE\SODIUM BICARBONATE\SODIUM CHLORIDE\SODIUM SULFATE
  17. GUAIFENESIN [Concomitant]
     Active Substance: GUAIFENESIN
  18. IBUPROFEN [Concomitant]
     Active Substance: IBUPROFEN
  19. ISENTRESS [Concomitant]
     Active Substance: RALTEGRAVIR POTASSIUM
  20. KALETRA [Concomitant]
     Active Substance: LOPINAVIR\RITONAVIR
  21. LAMIVUDINE [Concomitant]
     Active Substance: LAMIVUDINE
  22. NORVIR [Concomitant]
     Active Substance: RITONAVIR
  23. OXYCODONE [Concomitant]
     Active Substance: OXYCODONE
  24. PENICILLIN [Concomitant]
     Active Substance: PENICILLIN
  25. PROMETHAZINE [Concomitant]
     Active Substance: PROMETHAZINE HYDROCHLORIDE
  26. REYATAZ [Concomitant]
     Active Substance: ATAZANAVIR SULFATE
  27. TRAZODONE [Concomitant]
     Active Substance: TRAZODONE HYDROCHLORIDE

REACTIONS (17)
  - Death [Fatal]
  - Transplant evaluation [Not Recovered/Not Resolved]
  - Chronic kidney disease [Not Recovered/Not Resolved]
  - End stage renal disease [Not Recovered/Not Resolved]
  - Renal failure [Unknown]
  - Emotional distress [Not Recovered/Not Resolved]
  - Loss of personal independence in daily activities [Not Recovered/Not Resolved]
  - Quality of life decreased [Not Recovered/Not Resolved]
  - Economic problem [Not Recovered/Not Resolved]
  - Anhedonia [Not Recovered/Not Resolved]
  - Pain [Not Recovered/Not Resolved]
  - Fatigue [Unknown]
  - Gastrointestinal disorder [Unknown]
  - Gait disturbance [Not Recovered/Not Resolved]
  - Anxiety [Recovered/Resolved]
  - Depression [Recovered/Resolved]
  - Renal impairment [Unknown]

NARRATIVE: CASE EVENT DATE: 20140707
